FAERS Safety Report 14581408 (Version 2)
Quarter: 2018Q1

REPORT INFORMATION
  Report Type: Report from Study
  Country: US (occurrence: US)
  Receive Date: 20180228
  Receipt Date: 20180322
  Transmission Date: 20180509
  Serious: Yes (Other)
  Sender: FDA-Public Use
  Company Number: US-ASTRAZENECA-2017SF04403

PATIENT
  Age: 18851 Day
  Sex: Female

DRUGS (2)
  1. LYNPARZA [Suspect]
     Active Substance: OLAPARIB
     Indication: OVARIAN CANCER
     Route: 048
  2. LYNPARZA [Suspect]
     Active Substance: OLAPARIB
     Indication: OVARIAN CANCER
     Route: 048

REACTIONS (18)
  - Constipation [Not Recovered/Not Resolved]
  - Haemoptysis [Not Recovered/Not Resolved]
  - Carbohydrate antigen 125 increased [Unknown]
  - Back pain [Not Recovered/Not Resolved]
  - White blood cell count decreased [Unknown]
  - Stomatitis [Not Recovered/Not Resolved]
  - Hyperchlorhydria [Not Recovered/Not Resolved]
  - Dysgeusia [Not Recovered/Not Resolved]
  - Dry mouth [Not Recovered/Not Resolved]
  - Gastrooesophageal reflux disease [Recovered/Resolved]
  - Fatigue [Recovered/Resolved]
  - Nausea [Recovered/Resolved]
  - Drug ineffective [Not Recovered/Not Resolved]
  - Blood count abnormal [Recovered/Resolved]
  - Bone pain [Not Recovered/Not Resolved]
  - Nasopharyngitis [Recovering/Resolving]
  - Dyspepsia [Not Recovered/Not Resolved]
  - Red blood cell count decreased [Unknown]

NARRATIVE: CASE EVENT DATE: 20171110
